FAERS Safety Report 19521618 (Version 1)
Quarter: 2021Q3

REPORT INFORMATION
  Report Type: Spontaneous
  Country: US (occurrence: US)
  Receive Date: 20210713
  Receipt Date: 20210713
  Transmission Date: 20211014
  Serious: No
  Sender: FDA-Public Use
  Company Number: US-ORGANON-O2107USA000407

PATIENT
  Sex: Female

DRUGS (12)
  1. GANIRELIX ACETATE INJECTION [Concomitant]
     Active Substance: GANIRELIX ACETATE
  2. AZITHROMYCIN ANHYDROUS. [Concomitant]
     Active Substance: AZITHROMYCIN ANHYDROUS
  3. FOLLISTIM AQ [Suspect]
     Active Substance: FOLLITROPIN
     Indication: INFERTILITY
     Dosage: STRENGHT: 900 IU/ 1.08 ML, 75 TO 300 UNITS, AS DIRECTED
     Route: 058
     Dates: start: 20201020
  4. LETROZOLE. [Concomitant]
     Active Substance: LETROZOLE
  5. VITAMIN D NOS [Concomitant]
     Active Substance: VITAMIN D NOS
  6. LEUPROLIDE ACETATE. [Concomitant]
     Active Substance: LEUPROLIDE ACETATE
  7. XYZAL [Concomitant]
     Active Substance: LEVOCETIRIZINE DIHYDROCHLORIDE
  8. HCG [Concomitant]
     Active Substance: GONADOTROPHIN, CHORIONIC
  9. VIRT GARD [Concomitant]
  10. FOLIC ACID. [Concomitant]
     Active Substance: FOLIC ACID
  11. HYDROCORTISONE. [Concomitant]
     Active Substance: HYDROCORTISONE
  12. MENOPUR [Concomitant]
     Active Substance: FOLLITROPIN\LUTEINIZING HORMONE

REACTIONS (2)
  - Abdominal distension [Unknown]
  - Pain [Unknown]
